FAERS Safety Report 9994051 (Version 1)
Quarter: 2014Q1

REPORT INFORMATION
  Report Type: Spontaneous
  Country: US (occurrence: US)
  Receive Date: 20140310
  Receipt Date: 20140310
  Transmission Date: 20141002
  Serious: No
  Sender: FDA-Public Use
  Company Number: US-AMGEN-USASP2014002750

PATIENT
  Sex: Male

DRUGS (2)
  1. SENSIPAR [Suspect]
     Indication: PRODUCT USED FOR UNKNOWN INDICATION
     Dosage: UNK
     Route: 065
  2. CALCIUM ACETATE [Concomitant]
     Dosage: 6 TABLETS,UNK

REACTIONS (2)
  - Drug ineffective [Unknown]
  - Blood calcium abnormal [Unknown]
